FAERS Safety Report 11274241 (Version 2)
Quarter: 2015Q3

REPORT INFORMATION
  Report Type: Spontaneous
  Country: CN (occurrence: CN)
  Receive Date: 20150715
  Receipt Date: 20150804
  Transmission Date: 20151125
  Serious: Yes (Other)
  Sender: FDA-Public Use
  Company Number: CN-BRACCO-001898

PATIENT
  Age: 36 Year
  Sex: Male
  Weight: 65 kg

DRUGS (2)
  1. MULTIHANCE [Suspect]
     Active Substance: GADOBENATE DIMEGLUMINE
     Indication: NUCLEAR MAGNETIC RESONANCE IMAGING ABDOMINAL
     Route: 042
     Dates: start: 20150709, end: 20150709
  2. SODIUM CHLORIDE. [Concomitant]
     Active Substance: SODIUM CHLORIDE
     Dates: start: 20150709, end: 20150709

REACTIONS (8)
  - Lip oedema [Recovering/Resolving]
  - Dyspnoea [Recovered/Resolved]
  - Pulse abnormal [Recovered/Resolved]
  - Blood pressure decreased [Recovered/Resolved]
  - Eyelid oedema [Recovering/Resolving]
  - Electrocardiogram ST segment depression [Recovered/Resolved]
  - Myocardial ischaemia [Recovered/Resolved]
  - Cyanosis [Recovered/Resolved]

NARRATIVE: CASE EVENT DATE: 20150709
